FAERS Safety Report 20511376 (Version 1)
Quarter: 2022Q1

REPORT INFORMATION
  Report Type: Report from Study
  Country: US (occurrence: US)
  Receive Date: 20220224
  Receipt Date: 20220224
  Transmission Date: 20220423
  Serious: Yes (Other)
  Sender: FDA-Public Use
  Company Number: US-JAZZ-2021-US-027090

PATIENT
  Sex: Male

DRUGS (1)
  1. XYREM [Suspect]
     Active Substance: SODIUM OXYBATE
     Indication: Hypersomnia
     Dosage: UNKNOWN DOSE, UNKNOWN FREQUENCY

REACTIONS (19)
  - Erectile dysfunction [Unknown]
  - Microcytosis [Unknown]
  - Essential hypertension [Unknown]
  - Intervertebral disc protrusion [Unknown]
  - Gastrooesophageal reflux disease [Unknown]
  - Irritable bowel syndrome [Unknown]
  - Prostatomegaly [Unknown]
  - Hiatus hernia [Unknown]
  - Aortic aneurysm [Unknown]
  - Asthenia [Unknown]
  - Fibromyalgia [Unknown]
  - Sleep apnoea syndrome [Unknown]
  - Somnolence [Unknown]
  - Myalgia [Unknown]
  - Arthralgia [Unknown]
  - Arthritis [Unknown]
  - Chest pain [Unknown]
  - Anxiety [Unknown]
  - Memory impairment [Unknown]
